FAERS Safety Report 21468550 (Version 1)
Quarter: 2022Q4

REPORT INFORMATION
  Report Type: Spontaneous
  Country: US (occurrence: None)
  Receive Date: 20221017
  Receipt Date: 20221017
  Transmission Date: 20230113
  Serious: No
  Sender: FDA-Public Use
  Company Number: None

PATIENT
  Age: 33 Year
  Sex: Female

DRUGS (1)
  1. ENBREL [Suspect]
     Active Substance: ETANERCEPT
     Indication: Still^s disease
     Dosage: FREQUENCY : WEEKLY;?
     Route: 058
     Dates: start: 20220902

REACTIONS (5)
  - Injection site pruritus [None]
  - Contusion [None]
  - Pruritus [None]
  - Urticaria [None]
  - Injection site mass [None]

NARRATIVE: CASE EVENT DATE: 20221014
